FAERS Safety Report 8295441-9 (Version None)
Quarter: 2012Q2

REPORT INFORMATION
  Report Type: 
  Country: None (occurrence: None)
  Receive Date: 20120418
  Receipt Date: 20120411
  Transmission Date: 20120825
  Serious: Yes (Hospitalization, Other)
  Sender: FDA-Public Use
  Company Number: US-ELI_LILLY_AND_COMPANY-US201204004224

PATIENT
  Sex: Male

DRUGS (10)
  1. MELOXICAM [Concomitant]
  2. DIOVAN [Concomitant]
  3. FOLIC ACID [Concomitant]
  4. XARELTO [Concomitant]
  5. FUROSEMIDE [Concomitant]
  6. VITAMINS NOS [Concomitant]
  7. HYDROCODONE [Concomitant]
  8. FORTEO [Suspect]
     Indication: OSTEOPOROSIS
     Dosage: 20 UG, QD
     Dates: end: 20120301
  9. CALCIUM CARBONATE [Concomitant]
  10. POTASSIUM [Concomitant]

REACTIONS (3)
  - DEVICE DISLOCATION [None]
  - DEVICE RELATED INFECTION [None]
  - KNEE ARTHROPLASTY [None]
